FAERS Safety Report 8391451-1 (Version None)
Quarter: 2012Q2

REPORT INFORMATION
  Report Type: 
  Country: None (occurrence: None)
  Receive Date: 20120529
  Receipt Date: 20120516
  Transmission Date: 20120825
  Serious: Yes (Other)
  Sender: FDA-Public Use
  Company Number: US-ELI_LILLY_AND_COMPANY-US201104006136

PATIENT
  Sex: Female

DRUGS (2)
  1. FORTEO [Suspect]
     Indication: OSTEOPOROSIS
     Dosage: 20 MCG, QD
  2. FORTEO [Suspect]
     Dosage: 20 MCG, QD

REACTIONS (10)
  - MALAISE [None]
  - SEBORRHOEA [None]
  - ASPARTATE AMINOTRANSFERASE INCREASED [None]
  - APPLICATION SITE ODOUR [None]
  - BLOOD ALKALINE PHOSPHATASE INCREASED [None]
  - ALANINE AMINOTRANSFERASE INCREASED [None]
  - VOMITING [None]
  - ASPIRATION [None]
  - THIRST [None]
  - PNEUMONIA ASPIRATION [None]
